FAERS Safety Report 4345101-1 (Version None)
Quarter: 2004Q2

REPORT INFORMATION
  Report Type: 
  Country: None (occurrence: None)
  Receive Date: 20040421
  Receipt Date: 20040421
  Transmission Date: 20050107
  Serious: Yes (Other)
  Sender: FDA-Public Use
  Company Number: None

PATIENT
  Age: 51 Year
  Sex: Female
  Weight: 79.3795 kg

DRUGS (2)
  1. EFFEXOR [Suspect]
     Indication: DEPRESSION
     Dosage: 3 TABLET DAY ORAL
     Route: 048
     Dates: start: 20020815, end: 20040115
  2. NYOLOL GEL [Concomitant]

REACTIONS (7)
  - BALANCE DISORDER [None]
  - BLOOD CHOLESTEROL INCREASED [None]
  - FEELING ABNORMAL [None]
  - INTRAOCULAR PRESSURE INCREASED [None]
  - METABOLIC DISORDER [None]
  - WEIGHT INCREASED [None]
  - WEIGHT LOSS POOR [None]
